FAERS Safety Report 19687308 (Version 1)
Quarter: 2021Q3

REPORT INFORMATION
  Report Type: Spontaneous
  Country: US (occurrence: US)
  Receive Date: 20210811
  Receipt Date: 20210811
  Transmission Date: 20211014
  Serious: No
  Sender: FDA-Public Use
  Company Number: US-PFIZER INC-2021423560

PATIENT
  Age: 49 Year
  Sex: Female
  Weight: 81.63 kg

DRUGS (2)
  1. IBRANCE [Suspect]
     Active Substance: PALBOCICLIB
     Indication: BREAST CANCER FEMALE
     Dosage: 125 MG
     Route: 048
  2. IBRANCE [Suspect]
     Active Substance: PALBOCICLIB
     Indication: BREAST CANCER FEMALE
     Dosage: 100 MG, CYCLIC100 MG, CYCLIC (DAILY FOR 21 DAYS EVERY 28 DAYS/ DAILY; 21 OF 28 DAYS)
     Route: 048
     Dates: start: 20210316

REACTIONS (7)
  - Constipation [Unknown]
  - White blood cell count decreased [Not Recovered/Not Resolved]
  - Infrequent bowel movements [Unknown]
  - Oropharyngeal pain [Unknown]
  - Fatigue [Unknown]
  - Nausea [Not Recovered/Not Resolved]
  - Abdominal discomfort [Not Recovered/Not Resolved]
